FAERS Safety Report 4401634-0 (Version None)
Quarter: 2004Q3

REPORT INFORMATION
  Report Type: 
  Country: None (occurrence: None)
  Receive Date: 20040714
  Receipt Date: 20040701
  Transmission Date: 20050211
  Serious: Yes (Other)
  Sender: FDA-Public Use
  Company Number: 2004045183

PATIENT
  Sex: Female
  Weight: 65.7716 kg

DRUGS (2)
  1. DILANTIN KAPSEAL [Suspect]
     Indication: EPILEPSY
     Dosage: 300 MG (100 MG, TID INTERVAL: EVERY DAY), ORAL
     Route: 048
  2. FOLIC ACID [Concomitant]

REACTIONS (8)
  - ANTICONVULSANT DRUG LEVEL INCREASED [None]
  - CONVULSION [None]
  - DIPLOPIA [None]
  - FATIGUE [None]
  - FEELING COLD [None]
  - FEELING HOT [None]
  - MEDICATION ERROR [None]
  - PREGNANCY [None]
